FAERS Safety Report 16806135 (Version 1)
Quarter: 2019Q3

REPORT INFORMATION
  Report Type: Spontaneous
  Country: US (occurrence: US)
  Receive Date: 20190913
  Receipt Date: 20190913
  Transmission Date: 20191005
  Serious: Yes (Other)
  Sender: FDA-Public Use
  Company Number: US-009507513-1909USA003989

PATIENT
  Sex: Female

DRUGS (5)
  1. BRIDION [Suspect]
     Active Substance: SUGAMMADEX
     Dosage: STRENGTH-100 MG/ML, ONE DOSE OF 100 MILLIGRAM
     Route: 042
     Dates: start: 201810
  2. BRIDION [Suspect]
     Active Substance: SUGAMMADEX
     Dosage: STRENGTH-100 MG/ML, ONE DOSE OF 200 MILLIGRAM,
     Route: 042
     Dates: start: 201907, end: 201907
  3. ROCURONIUM BROMIDE. [Suspect]
     Active Substance: ROCURONIUM BROMIDE
     Dosage: UNKNOWN AMOUNT ABSORBED THROUGH SKIN
     Dates: start: 201810
  4. BRIDION [Suspect]
     Active Substance: SUGAMMADEX
     Dosage: STRENGTH-100 MG/ML, ONE DOSE OF 100 MILLIGRAM
     Route: 042
     Dates: start: 201810
  5. VECURONIUM BROMIDE. [Suspect]
     Active Substance: VECURONIUM BROMIDE
     Dosage: 1 OR 2 DROPS MAY HAVE HIT HER WRIST
     Dates: start: 201907

REACTIONS (16)
  - Paralysis [Recovered/Resolved]
  - Accidental exposure to product [Unknown]
  - Paraesthesia [Recovered/Resolved]
  - Dyspnoea [Recovered/Resolved]
  - Accidental exposure to product [Unknown]
  - Occupational exposure to product [Unknown]
  - Paraesthesia [Recovered/Resolved]
  - Therapeutic product effect incomplete [Recovered/Resolved]
  - Asthenia [Recovered/Resolved]
  - Chest pain [Recovered/Resolved]
  - Dyspnoea [Recovered/Resolved]
  - Exposure via skin contact [Unknown]
  - Paralysis [Recovered/Resolved]
  - Occupational exposure to product [Unknown]
  - Chest pain [Recovered/Resolved]
  - Exposure via skin contact [Unknown]

NARRATIVE: CASE EVENT DATE: 201810
